FAERS Safety Report 13150905 (Version 1)
Quarter: 2017Q1

REPORT INFORMATION
  Report Type: Spontaneous
  Country: US (occurrence: US)
  Receive Date: 20170119
  Receipt Date: 20170119
  Transmission Date: 20170428
  Serious: No
  Sender: FDA-Public Use
  Company Number: None

PATIENT
  Age: 64 Year
  Sex: Female
  Weight: 76.5 kg

DRUGS (14)
  1. LOSARTIN [Concomitant]
     Active Substance: LOSARTAN
  2. VITAMIN D3 [Concomitant]
     Active Substance: CHOLECALCIFEROL
  3. AMLODIPINE BESYLATE CIPLA USA, INC [Suspect]
     Active Substance: AMLODIPINE BESYLATE
     Indication: HYPERTENSION
     Dosage: ?          QUANTITY:1 TABLET(S);?
     Route: 048
     Dates: start: 20131215, end: 20161212
  4. LEVOTHYROXINE. [Concomitant]
     Active Substance: LEVOTHYROXINE
  5. N-ACETYLCYSTEINE [Concomitant]
     Active Substance: ACETYLCYSTEINE
  6. QUERCETIN [Concomitant]
     Active Substance: QUERCETIN
  7. LAMOTRIGINE. [Concomitant]
     Active Substance: LAMOTRIGINE
  8. PROVENTIL [Concomitant]
     Active Substance: ALBUTEROL
  9. VYVANSE [Concomitant]
     Active Substance: LISDEXAMFETAMINE DIMESYLATE
  10. ASMANEX [Concomitant]
     Active Substance: MOMETASONE FUROATE
  11. FISH OIL [Concomitant]
     Active Substance: FISH OIL
  12. VITAMIN C [Concomitant]
     Active Substance: ASCORBIC ACID
  13. LIOTHYRONINE [Concomitant]
     Active Substance: LIOTHYRONINE
  14. VITAMIN B COMPLEX [Concomitant]
     Active Substance: CYANOCOBALAMIN\DEXPANTHENOL\NIACINAMIDE\PYRIDOXINE HYDROCHLORIDE\RIBOFLAVIN 5^-PHOSPHATE SODIUM\THIAMINE HYDROCHLORIDE\VITAMIN B COMPLEX

REACTIONS (2)
  - Muscle spasms [None]
  - Headache [None]

NARRATIVE: CASE EVENT DATE: 20161212
